FAERS Safety Report 19480435 (Version 1)
Quarter: 2021Q3

REPORT INFORMATION
  Report Type: Other
  Country: US (occurrence: US)
  Receive Date: 20210701
  Receipt Date: 20210701
  Transmission Date: 20211014
  Serious: Yes (Other)
  Sender: FDA-Public Use
  Company Number: US-ALLIED PHARMA-000080

PATIENT
  Age: 50 Year
  Sex: Male

DRUGS (4)
  1. MYCOPHENOLATE MOFETIL. [Concomitant]
     Active Substance: MYCOPHENOLATE MOFETIL
     Indication: DISRUPTION OF THE PHOTORECEPTOR INNER SEGMENT-OUTER SEGMENT
     Dosage: 1 G TWICE DAILY
  2. FLUOCINOLONE ACETONIDE. [Suspect]
     Active Substance: FLUOCINOLONE ACETONIDE
     Indication: ACUTE ZONAL OCCULT OUTER RETINOPATHY
  3. TRIAMCINOLONE ACETONIDE. [Suspect]
     Active Substance: TRIAMCINOLONE ACETONIDE
     Indication: ACUTE ZONAL OCCULT OUTER RETINOPATHY
     Route: 047
  4. VALACYCLOVIR [Concomitant]
     Active Substance: VALACYCLOVIR HYDROCHLORIDE
     Indication: PRODUCT USED FOR UNKNOWN INDICATION
     Dosage: 1 G DAILY

REACTIONS (2)
  - Cataract [Recovered/Resolved]
  - Ocular hypertension [Recovering/Resolving]
